FAERS Safety Report 25723323 (Version 1)
Quarter: 2025Q3

REPORT INFORMATION
  Report Type: Spontaneous
  Country: EU (occurrence: EU)
  Receive Date: 20250825
  Receipt Date: 20250825
  Transmission Date: 20251020
  Serious: Yes (Hospitalization)
  Sender: MYLAN
  Company Number: None

PATIENT
  Age: 97 Year
  Sex: Female

DRUGS (3)
  1. MIRTAZAPINE [Suspect]
     Active Substance: MIRTAZAPINE
     Indication: Depression
     Dosage: 15 MILLIGRAM, QD
     Dates: start: 20250525, end: 20250529
  2. MIANSERIN [Suspect]
     Active Substance: MIANSERIN
     Indication: Depression
  3. MIANSERIN [Suspect]
     Active Substance: MIANSERIN
     Dates: start: 20250509, end: 20250514

REACTIONS (1)
  - Normocytic anaemia [Unknown]

NARRATIVE: CASE EVENT DATE: 20250514
